FAERS Safety Report 4545045-6 (Version None)
Quarter: 2005Q1

REPORT INFORMATION
  Report Type: 
  Country: None (occurrence: None)
  Receive Date: 20050103
  Receipt Date: 20041228
  Transmission Date: 20050727
  Serious: Yes (Other)
  Sender: FDA-Public Use
  Company Number: 2004118453

PATIENT
  Age: 72 Year
  Sex: Female

DRUGS (3)
  1. SPIRONOLACTONE [Suspect]
     Indication: HEPATIC CIRRHOSIS
     Dosage: 100 MG (100 MG, DAILY INTERVAL: EVERY DAY), ORAL
     Route: 048
     Dates: start: 20030901
  2. SPIRONOLACTONE [Suspect]
     Indication: LIVER DISORDER
     Dosage: 100 MG (100 MG, DAILY INTERVAL: EVERY DAY), ORAL
     Route: 048
     Dates: start: 20030901
  3. FUROSEMIDE [Concomitant]

REACTIONS (2)
  - DRUG ERUPTION [None]
  - LICHEN PLANUS [None]
